FAERS Safety Report 7069046-1 (Version None)
Quarter: 2010Q4

REPORT INFORMATION
  Report Type: 
  Country: None (occurrence: None)
  Receive Date: 20101028
  Receipt Date: 20101020
  Transmission Date: 20110411
  Serious: Yes (Hospitalization)
  Sender: FDA-Public Use
  Company Number: RO-ABBOTT-10P-135-0680139-00

PATIENT
  Sex: Male
  Weight: 90 kg

DRUGS (7)
  1. HUMIRA [Suspect]
     Indication: PSORIATIC ARTHROPATHY
     Route: 058
     Dates: start: 20080208, end: 20090218
  2. SIOFOR [Concomitant]
     Indication: TYPE 2 DIABETES MELLITUS
  3. DAIVONEX [Concomitant]
     Indication: PSORIASIS
  4. DAIVOBET [Concomitant]
     Indication: PSORIASIS
  5. METHOTREXATE [Concomitant]
     Indication: PSORIATIC ARTHROPATHY
  6. METHOTREXATE/SSZ [Concomitant]
     Indication: PSORIATIC ARTHROPATHY
  7. METHOTREXATE/ARAVA [Concomitant]
     Indication: PSORIATIC ARTHROPATHY

REACTIONS (3)
  - ALANINE AMINOTRANSFERASE INCREASED [None]
  - ASPARTATE AMINOTRANSFERASE INCREASED [None]
  - GAMMA-GLUTAMYLTRANSFERASE INCREASED [None]
